FAERS Safety Report 17808097 (Version 1)
Quarter: 2020Q2

REPORT INFORMATION
  Report Type: Spontaneous
  Country: US (occurrence: US)
  Receive Date: 20200520
  Receipt Date: 20200520
  Transmission Date: 20200714
  Serious: No
  Sender: FDA-Public Use
  Company Number: None

PATIENT
  Age: 74 Year
  Sex: Female
  Weight: 54.95 kg

DRUGS (13)
  1. OMEPRAZOLE. [Concomitant]
     Active Substance: OMEPRAZOLE
  2. TRAMADOL. [Concomitant]
     Active Substance: TRAMADOL
  3. VITIMAN B [Concomitant]
  4. PROCHLORPERAZINE. [Concomitant]
     Active Substance: PROCHLORPERAZINE
  5. OXYBUTYNIN. [Concomitant]
     Active Substance: OXYBUTYNIN CHLORIDE
  6. CALCIUM-MAGNESIUM-ZINC [Concomitant]
  7. TAMSULOSIN [Concomitant]
     Active Substance: TAMSULOSIN
  8. CALCIUM CARBONATE. [Concomitant]
     Active Substance: CALCIUM CARBONATE
  9. CAPECITABINE. [Suspect]
     Active Substance: CAPECITABINE
     Indication: HEPATOBILIARY CANCER
     Route: 048
     Dates: start: 20191014, end: 20200511
  10. AUGMENTIN [Concomitant]
     Active Substance: AMOXICILLIN\CLAVULANATE POTASSIUM
  11. ATORVASTATIN [Concomitant]
     Active Substance: ATORVASTATIN
  12. VITAMIN D [Concomitant]
     Active Substance: VITAMIN D NOS
  13. ZOFRAN [Concomitant]
     Active Substance: ONDANSETRON HYDROCHLORIDE

REACTIONS (1)
  - Disease progression [None]

NARRATIVE: CASE EVENT DATE: 20200520
